FAERS Safety Report 5059798-4 (Version None)
Quarter: 2006Q3

REPORT INFORMATION
  Report Type: 
  Country: None (occurrence: None)
  Receive Date: 20060724
  Receipt Date: 20060628
  Transmission Date: 20061208
  Serious: Yes (Death)
  Sender: FDA-Public Use
  Company Number: JP-JPN-A200602354

PATIENT
  Age: 64 Year
  Sex: Male

DRUGS (13)
  1. PAXIL [Suspect]
     Indication: DEPRESSION
     Dosage: 10MG PER DAY
     Route: 048
     Dates: start: 20060605, end: 20060616
  2. BLOPRESS [Concomitant]
     Route: 048
     Dates: end: 20060616
  3. NORVASC [Concomitant]
     Route: 048
     Dates: end: 20060616
  4. ACINON [Concomitant]
     Route: 048
     Dates: end: 20060616
  5. CONAN [Concomitant]
     Route: 048
     Dates: end: 20060616
  6. GLIMICRON [Concomitant]
     Route: 048
     Dates: end: 20060616
  7. UNKNOWN DRUG [Concomitant]
     Route: 048
     Dates: end: 20060616
  8. UNKNOWN DRUG [Concomitant]
     Route: 048
     Dates: end: 20060616
  9. YODEL S [Concomitant]
     Route: 048
     Dates: end: 20060616
  10. AMOBAN [Concomitant]
     Route: 048
     Dates: end: 20060616
  11. FLUNITRAZEPAM [Concomitant]
     Indication: INSOMNIA
     Dosage: 1MG PER DAY
     Route: 048
     Dates: start: 20060612, end: 20060616
  12. LEXOTAN [Concomitant]
     Indication: HYPOCHONDRIASIS
     Dosage: 6MG PER DAY
     Route: 048
     Dates: start: 20060531, end: 20060607
  13. UNKNOWN DRUG [Concomitant]
     Indication: INSOMNIA
     Dosage: 5MG PER DAY
     Route: 048
     Dates: start: 20060531, end: 20060607

REACTIONS (6)
  - ANXIETY [None]
  - ASTHENIA [None]
  - COMPLETED SUICIDE [None]
  - INJURY ASPHYXIATION [None]
  - IRRITABILITY [None]
  - PARTNER STRESS [None]
